FAERS Safety Report 9853628 (Version 1)
Quarter: 2014Q1

REPORT INFORMATION
  Report Type: Spontaneous
  Country: US (occurrence: US)
  Receive Date: 20140129
  Receipt Date: 20140129
  Transmission Date: 20141002
  Serious: Yes (Other)
  Sender: FDA-Public Use
  Company Number: US-B.I. PHARMACEUTICALS,INC./RIDGEFIELD-2014-BI-03549BP

PATIENT
  Age: 75 Year
  Sex: Male

DRUGS (3)
  1. TRADJENTA [Suspect]
     Indication: TYPE 2 DIABETES MELLITUS
     Dosage: 5 MG
     Route: 048
     Dates: start: 201112, end: 201312
  2. PLAVIX [Concomitant]
     Indication: CORONARY ARTERY DISEASE
  3. LISINOPRIL [Concomitant]
     Indication: HYPERTENSION

REACTIONS (1)
  - Pancreatitis [Recovered/Resolved]
